FAERS Safety Report 13627233 (Version 3)
Quarter: 2019Q2

REPORT INFORMATION
  Report Type: Report from Study
  Country: IT (occurrence: IT)
  Receive Date: 20170608
  Receipt Date: 20190417
  Transmission Date: 20190711
  Serious: Yes (Other)
  Sender: FDA-Public Use
  Company Number: IT-ADIENNEP-2017AD000157

PATIENT
  Age: 35 Year
  Sex: Female

DRUGS (2)
  1. TEPADINA [Suspect]
     Active Substance: THIOTEPA
     Indication: STEM CELL TRANSPLANT
     Dosage: 6 MG/KG; ON DAY -5
     Route: 042
     Dates: start: 20160306, end: 20160306
  2. TREOSULFAN [Suspect]
     Active Substance: TREOSULFAN
     Indication: STEM CELL TRANSPLANT
     Dosage: 14000 MG/M2 DAILY ON DAYS - 4, -3 AND - 2.

REACTIONS (7)
  - Neutrophil count [Recovered/Resolved]
  - Mucosal inflammation [Recovered/Resolved]
  - Device related infection [Recovered/Resolved]
  - Staphylococcal infection [Recovered/Resolved]
  - Pyrexia [Recovered/Resolved]
  - Lymphopenia [Recovered/Resolved]
  - Weight increased [Recovered/Resolved]

NARRATIVE: CASE EVENT DATE: 20160308
